FAERS Safety Report 9226284 (Version 1)
Quarter: 2013Q2

REPORT INFORMATION
  Report Type: Spontaneous
  Country: US (occurrence: US)
  Receive Date: 20130411
  Receipt Date: 20130411
  Transmission Date: 20140414
  Serious: No
  Sender: FDA-Public Use
  Company Number: US-ASTRAZENECA-2013SE20732

PATIENT
  Age: 48 Year
  Sex: Male
  Weight: 68 kg

DRUGS (5)
  1. SYMBICORT [Suspect]
     Indication: ASTHMA
     Dosage: 80/4.5 MCG, FIVE TO SEVEN PUFFS, AS REQUIRED
     Route: 055
     Dates: start: 201301
  2. SYMBICORT [Suspect]
     Indication: ASTHMA
     Dosage: UNKNOWN
     Route: 055
  3. SYMBICORT [Suspect]
     Indication: ASTHMA
     Dosage: ONCE A DAY
     Route: 055
  4. SYMBICORT [Suspect]
     Indication: ASTHMA
     Dosage: TWICE A DAY
     Route: 055
  5. LORICET [Concomitant]
     Indication: BACK PAIN
     Route: 048

REACTIONS (3)
  - Asthma [Unknown]
  - Dizziness [Unknown]
  - Off label use [Unknown]
